FAERS Safety Report 6379204-7 (Version None)
Quarter: 2009Q3

REPORT INFORMATION
  Report Type: 
  Country: None (occurrence: None)
  Receive Date: 20090928
  Receipt Date: 20090923
  Transmission Date: 20100115
  Serious: Yes (Disabling)
  Sender: FDA-Public Use
  Company Number: BR-B.I. PHARMACEUTICALS,INC./RIDGEFIELD-2009-BR-00974BR

PATIENT
  Sex: Male

DRUGS (5)
  1. SPIRIVA [Suspect]
     Indication: EMPHYSEMA
     Dosage: 18 MCG
     Route: 055
     Dates: start: 20080101
  2. SIMVASTATIN [Concomitant]
  3. LOSARTAN [Concomitant]
  4. CARBAMAZEPINE [Concomitant]
  5. REVEPIL [Concomitant]

REACTIONS (3)
  - BLINDNESS [None]
  - MACULAR DEGENERATION [None]
  - RETINAL HAEMORRHAGE [None]
